FAERS Safety Report 9612893 (Version 3)
Quarter: 2013Q4

REPORT INFORMATION
  Report Type: Spontaneous
  Country: DE (occurrence: DE)
  Receive Date: 20131010
  Receipt Date: 20131220
  Transmission Date: 20140711
  Serious: Yes (Other)
  Sender: FDA-Public Use
  Company Number: DE-ABBVIE-13P-062-1150626-00

PATIENT
  Age: 44 Year
  Sex: Female
  Weight: 61 kg

DRUGS (9)
  1. ENANTONE - GYN 3.75MG [Suspect]
     Indication: MENSTRUAL DISCOMFORT
     Dates: start: 20130612, end: 20130612
  2. ENANTONE - GYN 3.75MG [Suspect]
     Dates: start: 20130711, end: 20130711
  3. BISOPROLOL [Concomitant]
     Indication: PRODUCT USED FOR UNKNOWN INDICATION
  4. SINUPRET [Concomitant]
     Indication: PRODUCT USED FOR UNKNOWN INDICATION
  5. DOXEPIN [Concomitant]
     Indication: PRODUCT USED FOR UNKNOWN INDICATION
  6. TORASEMID [Concomitant]
     Indication: PRODUCT USED FOR UNKNOWN INDICATION
  7. IMIGRAN [Concomitant]
     Indication: PRODUCT USED FOR UNKNOWN INDICATION
  8. NITROLINGUAL [Concomitant]
     Indication: PRODUCT USED FOR UNKNOWN INDICATION
  9. RAMIPRIL [Concomitant]
     Indication: PRODUCT USED FOR UNKNOWN INDICATION

REACTIONS (20)
  - Food aversion [Unknown]
  - Hypoaesthesia oral [Not Recovered/Not Resolved]
  - Weight decreased [Not Recovered/Not Resolved]
  - Blood pressure increased [Unknown]
  - Vomiting [Unknown]
  - Headache [Unknown]
  - Hot flush [Unknown]
  - Feeling abnormal [Not Recovered/Not Resolved]
  - Off label use [Unknown]
  - Ageusia [Unknown]
  - Fatigue [Unknown]
  - General physical health deterioration [Unknown]
  - Horner^s syndrome [Unknown]
  - Eyelid disorder [Unknown]
  - Sinus congestion [Unknown]
  - Norepinephrine increased [Unknown]
  - Visual impairment [Unknown]
  - Amenorrhoea [Unknown]
  - Feeling abnormal [Unknown]
  - Depression [Unknown]
